FAERS Safety Report 7284243-8 (Version None)
Quarter: 2011Q1

REPORT INFORMATION
  Report Type: 
  Country: None (occurrence: None)
  Receive Date: 20110127
  Receipt Date: 20110118
  Transmission Date: 20110831
  Serious: Yes (Hospitalization)
  Sender: FDA-Public Use
  Company Number: TRP_07515_2011

PATIENT
  Sex: Male

DRUGS (3)
  1. RIBAVIRIN [Suspect]
     Indication: HEPATITIS C
     Dosage: (DF)
     Dates: end: 20100101
  2. CHEMOTHERAPEUTICS [Concomitant]
  3. INFERGEN [Suspect]
     Indication: HEPATITIS C
     Dosage: (DF)
     Dates: end: 20100101

REACTIONS (21)
  - ACUTE PRERENAL FAILURE [None]
  - HYPERTENSION [None]
  - SPLENOMEGALY [None]
  - THROMBOCYTOPENIA [None]
  - PNEUMOTHORAX [None]
  - DEHYDRATION [None]
  - IRON DEFICIENCY ANAEMIA [None]
  - RENAL FAILURE ACUTE [None]
  - NIGHT SWEATS [None]
  - LUNG INFILTRATION [None]
  - PULMONARY HAEMORRHAGE [None]
  - PNEUMONIA STREPTOCOCCAL [None]
  - PSORIASIS [None]
  - CONJUNCTIVAL HAEMORRHAGE [None]
  - VOMITING [None]
  - TINEA PEDIS [None]
  - HAEMOPTYSIS [None]
  - PLEURAL EFFUSION [None]
  - DIARRHOEA [None]
  - HEPATOMEGALY [None]
  - LUNG CONSOLIDATION [None]
